FAERS Safety Report 6403275-2 (Version None)
Quarter: 2009Q4

REPORT INFORMATION
  Report Type: 
  Country: None (occurrence: None)
  Receive Date: 20091016
  Receipt Date: 20091008
  Transmission Date: 20100525
  Serious: Yes (Disabling)
  Sender: FDA-Public Use
  Company Number: NO-JNJFOC-20091002754

PATIENT
  Sex: Male

DRUGS (4)
  1. CONCERTA [Suspect]
     Route: 048
  2. CONCERTA [Suspect]
     Indication: ATTENTION DEFICIT/HYPERACTIVITY DISORDER
     Route: 048
  3. RITALIN [Suspect]
     Indication: EPILEPSY
     Route: 065
  4. VALPROATE SODIUM [Concomitant]
     Route: 065

REACTIONS (4)
  - FEAR [None]
  - HALLUCINATION [None]
  - PANIC REACTION [None]
  - PHOBIA [None]
